FAERS Safety Report 10500717 (Version 2)
Quarter: 2014Q4

REPORT INFORMATION
  Report Type: Report from Study
  Country: JP (occurrence: JP)
  Receive Date: 20141007
  Receipt Date: 20141129
  Transmission Date: 20150528
  Serious: Yes (Hospitalization)
  Sender: FDA-Public Use
  Company Number: JP-ROCHE-1468570

PATIENT
  Age: 75 Year
  Sex: Male

DRUGS (6)
  1. RANIBIZUMAB [Suspect]
     Active Substance: RANIBIZUMAB
     Indication: RETINAL VEIN OCCLUSION
     Route: 050
     Dates: start: 20140812, end: 20140917
  2. EVAMYL [Concomitant]
     Active Substance: LORMETAZEPAM
  3. IMIDAPRIL HYDROCHLORIDE [Concomitant]
     Active Substance: IMIDAPRIL HYDROCHLORIDE
     Indication: HYPERTENSION
  4. ATELEC [Concomitant]
     Active Substance: CILNIDIPINE
  5. BAYASPIRIN [Concomitant]
     Active Substance: ASPIRIN
  6. GATIFLO [Concomitant]
     Active Substance: GATIFLOXACIN

REACTIONS (1)
  - Cerebral infarction [Recovered/Resolved]

NARRATIVE: CASE EVENT DATE: 20140913
